FAERS Safety Report 22637798 (Version 1)
Quarter: 2023Q2

REPORT INFORMATION
  Report Type: Spontaneous
  Country: US (occurrence: None)
  Receive Date: 20230623
  Receipt Date: 20230623
  Transmission Date: 20230722
  Serious: No
  Sender: FDA-Public Use
  Company Number: None

PATIENT
  Age: 53 Year
  Sex: Female
  Weight: 79.65 kg

DRUGS (3)
  1. TOPAMAX [Suspect]
     Active Substance: TOPIRAMATE
     Indication: Depression
     Dates: start: 20220401
  2. GABAPENTIN [Concomitant]
     Active Substance: GABAPENTIN
  3. Thorn Meta Balance [Concomitant]

REACTIONS (2)
  - Swollen tongue [None]
  - Burning mouth syndrome [None]

NARRATIVE: CASE EVENT DATE: 20220401
